FAERS Safety Report 4347837-5 (Version None)
Quarter: 2004Q2

REPORT INFORMATION
  Report Type: 
  Country: None (occurrence: None)
  Receive Date: 20040422
  Receipt Date: 20040402
  Transmission Date: 20050107
  Serious: Yes (Other)
  Sender: FDA-Public Use
  Company Number: USA040361310

PATIENT
  Age: 70 Year
  Sex: Female
  Weight: 57 kg

DRUGS (3)
  1. EVISTA [Suspect]
     Indication: OSTEOPOROSIS
     Dosage: 60 MG/1 DAY
     Dates: start: 19980601
  2. FOSAMAX [Concomitant]
  3. ACTONEL [Concomitant]

REACTIONS (2)
  - MULTIPLE FRACTURES [None]
  - SPINAL COMPRESSION FRACTURE [None]
